FAERS Safety Report 5920910-3 (Version None)
Quarter: 2008Q4

REPORT INFORMATION
  Report Type: 
  Country: None (occurrence: None)
  Receive Date: 20081016
  Receipt Date: 20081014
  Transmission Date: 20090506
  Serious: Yes (Disabling)
  Sender: FDA-Public Use
  Company Number: FR-EISAI MEDICAL RESEARCH-E2090-00547-SPO-FR

PATIENT
  Age: 36 Year
  Sex: Female

DRUGS (3)
  1. ZONEGRAN [Suspect]
     Indication: EPILEPSY
     Route: 048
     Dates: start: 20070121
  2. TEGRETOL [Concomitant]
     Indication: EPILEPSY
     Route: 048
  3. PHENOBARBITAL TAB [Concomitant]
     Indication: EPILEPSY
     Route: 048

REACTIONS (1)
  - HODGKIN'S DISEASE NODULAR SCLEROSIS STAGE UNSPECIFIED [None]
